FAERS Safety Report 5241124-9 (Version None)
Quarter: 2007Q1

REPORT INFORMATION
  Report Type: 
  Country: None (occurrence: None)
  Receive Date: 20070214
  Receipt Date: 20070214
  Transmission Date: 20070707
  Serious: Yes (Hospitalization)
  Sender: FDA-Public Use
  Company Number: None

PATIENT
  Age: 58 Year
  Sex: Male

DRUGS (17)
  1. PREDNISONE [Suspect]
     Indication: CHRONIC OBSTRUCTIVE PULMONARY DISEASE
     Dosage: TAPERING DOSE
     Route: 048
     Dates: start: 20060610, end: 20061115
  2. ADVAIR 550/50 [Concomitant]
  3. ALBUTEROL 90 /IPRATROPIUM 18 [Concomitant]
  4. AMOXICILLIN [Concomitant]
  5. BUDESONIDE [Concomitant]
  6. FLUNISOLIDE NASAL SPRAY [Concomitant]
  7. FLUOXETINE [Concomitant]
  8. METFORMIN HCL [Concomitant]
  9. SINGULAIR [Concomitant]
  10. NORTRIPTYLINE HCL [Concomitant]
  11. THEOPHYLLINE [Concomitant]
  12. TIOTROPIUM BROMIDE [Concomitant]
  13. GABAPENTIN [Concomitant]
  14. VALSARTAN [Concomitant]
  15. LISINOPRIL [Concomitant]
  16. HYDROCHLOROTHIAZIDE [Concomitant]
  17. OMEPRAZOLE [Concomitant]

REACTIONS (2)
  - DRUG DOSE OMISSION [None]
  - HYPERGLYCAEMIA [None]
